FAERS Safety Report 15189786 (Version 1)
Quarter: 2018Q3

REPORT INFORMATION
  Report Type: Spontaneous
  Country: RO (occurrence: RO)
  Receive Date: 20180724
  Receipt Date: 20180724
  Transmission Date: 20181010
  Serious: Yes (Death, Hospitalization)
  Sender: FDA-Public Use
  Company Number: PHHY2018RO049122

PATIENT
  Age: 55 Year
  Sex: Female
  Weight: 80 kg

DRUGS (2)
  1. DEXAMETHASONE. [Suspect]
     Active Substance: DEXAMETHASONE
     Indication: PLASMA CELL MYELOMA
     Dosage: THIRD TREATMENT SESSION
     Route: 065
  2. VELCADE [Suspect]
     Active Substance: BORTEZOMIB
     Indication: PLASMA CELL MYELOMA
     Dosage: THIRD TREATMENT SESSION
     Route: 065

REACTIONS (27)
  - Neutrophilia [Fatal]
  - Petechiae [Fatal]
  - Skin lesion [Fatal]
  - Thrombocytopenia [Fatal]
  - Listeriosis [Fatal]
  - Dysphagia [Fatal]
  - C-reactive protein increased [Fatal]
  - Anaemia [Fatal]
  - Rash erythematous [Fatal]
  - Productive cough [Fatal]
  - Stomatitis [Fatal]
  - Inflammation [Fatal]
  - Rash pustular [Fatal]
  - Vertigo [Fatal]
  - Immunosuppression [Fatal]
  - Pyrexia [Fatal]
  - Chills [Fatal]
  - Purpura [Fatal]
  - PCO2 decreased [Fatal]
  - Oedema peripheral [Fatal]
  - Hypotension [Fatal]
  - Coma [Fatal]
  - Ecchymosis [Fatal]
  - Listeria sepsis [Fatal]
  - Haemodynamic instability [Fatal]
  - White blood cell count increased [Fatal]
  - Escherichia sepsis [Fatal]
